FAERS Safety Report 7304044-1 (Version None)
Quarter: 2011Q1

REPORT INFORMATION
  Report Type: 
  Country: None (occurrence: None)
  Receive Date: 20110221
  Receipt Date: 20110208
  Transmission Date: 20110831
  Serious: Yes (Other)
  Sender: FDA-Public Use
  Company Number: PHHY2011BR11178

PATIENT
  Sex: Female
  Weight: 70 kg

DRUGS (2)
  1. ATENOLOL [Concomitant]
     Dosage: 50 MG, UNK
  2. DIOVAN [Suspect]
     Indication: HYPERTENSION
     Dosage: 320 MG, QD, 1 TABLET A DAY
     Route: 048

REACTIONS (2)
  - LABYRINTHITIS [None]
  - DIZZINESS [None]
